FAERS Safety Report 19133078 (Version 1)
Quarter: 2021Q2

REPORT INFORMATION
  Report Type: Spontaneous
  Country: US (occurrence: US)
  Receive Date: 20210413
  Receipt Date: 20210413
  Transmission Date: 20210717
  Serious: Yes (Other)
  Sender: FDA-Public Use
  Company Number: None

PATIENT
  Age: 74 Year
  Sex: Female
  Weight: 88.2 kg

DRUGS (20)
  1. VITAMIN B12 [Concomitant]
     Active Substance: CYANOCOBALAMIN
  2. MAGNESIUM OXIDE 250MG [Concomitant]
  3. DUPIXENT [Suspect]
     Active Substance: DUPILUMAB
     Indication: ASTHMA
     Dosage: ?          OTHER FREQUENCY:EVERY 2 WEEKS;?
     Route: 058
     Dates: start: 20201014, end: 20210326
  4. METFORMIN [Concomitant]
     Active Substance: METFORMIN HYDROCHLORIDE
  5. DUPIXENT [Suspect]
     Active Substance: DUPILUMAB
     Indication: NASAL POLYPS
     Dosage: ?          OTHER FREQUENCY:EVERY 2 WEEKS;?
     Route: 058
     Dates: start: 20201014, end: 20210326
  6. CARVEDILOL 3.125MG [Concomitant]
     Active Substance: CARVEDILOL
  7. VITAMIN D3 1.25MG (50,000 UNITS) [Concomitant]
  8. VICTOZA [Concomitant]
     Active Substance: LIRAGLUTIDE
  9. INVOKANA [Concomitant]
     Active Substance: CANAGLIFLOZIN
  10. PHENYLEPHRINE [Concomitant]
     Active Substance: PHENYLEPHRINE HYDROCHLORIDE
  11. ZETIA [Concomitant]
     Active Substance: EZETIMIBE
  12. LANTUS 100UNITS/ML [Concomitant]
  13. CALCIUM CARBONATE 1250MG [Concomitant]
  14. LEVOTHYROXINE 125MCG [Concomitant]
     Active Substance: LEVOTHYROXINE SODIUM
  15. ASPIRIN 81MG [Concomitant]
     Active Substance: ASPIRIN
  16. POTASSIUM CHLORIDE 10MG [Concomitant]
  17. DULOXETINE 60MG [Concomitant]
     Active Substance: DULOXETINE
  18. CHLOPHENIRAMINE MALEATE 4MG [Concomitant]
  19. FISH OIL 1000MG [Concomitant]
  20. SPIRONOLACTONE 50MG [Concomitant]
     Active Substance: SPIRONOLACTONE

REACTIONS (6)
  - Taste disorder [None]
  - Nervousness [None]
  - Asthma [None]
  - Blood glucose increased [None]
  - Nausea [None]
  - Fatigue [None]

NARRATIVE: CASE EVENT DATE: 20210323
